FAERS Safety Report 23132612 (Version 1)
Quarter: 2023Q4

REPORT INFORMATION
  Report Type: Report from Study
  Country: US (occurrence: None)
  Receive Date: 20231101
  Receipt Date: 20231101
  Transmission Date: 20240109
  Serious: Yes (Other)
  Sender: FDA-Public Use
  Company Number: 2023A242517

PATIENT
  Sex: Male
  Weight: 104 kg

DRUGS (4)
  1. KOSELUGO [Suspect]
     Active Substance: SELUMETINIB
     Indication: Neurofibromatosis
     Dosage: 25.0MG AS REQUIRED
     Route: 048
     Dates: start: 20200518
  2. TAMSULOSIN [Concomitant]
     Active Substance: TAMSULOSIN
  3. ONDANSETRON [Concomitant]
     Active Substance: ONDANSETRON
  4. NORCO [Concomitant]
     Active Substance: ACETAMINOPHEN\HYDROCODONE BITARTRATE

REACTIONS (2)
  - Nephrolithiasis [Unknown]
  - Product dose omission in error [Unknown]
